FAERS Safety Report 9556308 (Version 3)
Quarter: 2014Q1

REPORT INFORMATION
  Report Type: Spontaneous
  Country: US (occurrence: US)
  Receive Date: 20130926
  Receipt Date: 20140207
  Transmission Date: 20141002
  Serious: Yes (Other)
  Sender: FDA-Public Use
  Company Number: US-VERTEX PHARMACEUTICALS INC-2013-009796

PATIENT
  Age: 62 Year
  Sex: Male
  Weight: 96.6 kg

DRUGS (6)
  1. INCIVEK [Suspect]
     Indication: HEPATITIS C
     Dosage: 750 MG, TID
     Route: 048
     Dates: start: 20130915, end: 20131015
  2. RIBASPHERE [Suspect]
     Indication: HEPATITIS C
     Dosage: 600 MG, BID
     Route: 048
     Dates: start: 20130915
  3. RIBASPHERE [Suspect]
     Dosage: 2 DF, BID
     Route: 048
     Dates: start: 20131009, end: 20131015
  4. PEGASYS [Suspect]
     Indication: HEPATITIS C
     Dosage: 180 ?G, QW
     Route: 058
     Dates: start: 20130915, end: 20131015
  5. CASTOR OIL [Concomitant]
     Indication: LIVER DISORDER
     Dosage: UNK, PRN
     Route: 061
  6. LIVER CLEANSING HERBALS [Concomitant]
     Indication: LIVER DISORDER
     Dosage: UNK, PRN
     Route: 048

REACTIONS (10)
  - Suicidal ideation [Recovered/Resolved]
  - Hepatomegaly [Not Recovered/Not Resolved]
  - Blister [Not Recovered/Not Resolved]
  - Liver tenderness [Not Recovered/Not Resolved]
  - Depression [Unknown]
  - Red blood cell count decreased [Unknown]
  - Nausea [Not Recovered/Not Resolved]
  - Anorectal discomfort [Not Recovered/Not Resolved]
  - Diarrhoea [Not Recovered/Not Resolved]
  - Drug ineffective [Unknown]
